FAERS Safety Report 8795355 (Version 2)
Quarter: 2012Q4

REPORT INFORMATION
  Report Type: 
  Country: US (occurrence: US)
  Receive Date: 20120917
  Receipt Date: 20121004
  Transmission Date: 20130627
  Serious: No
  Sender: FDA-Public Use
  Company Number: US-009507513-1209USA004299

PATIENT
  Age: 58 None
  Sex: Female
  Weight: 46.71 kg

DRUGS (5)
  1. MIRALAX [Suspect]
     Indication: CONSTIPATION
     Dosage: 17 g, UNK
     Route: 048
     Dates: start: 20120808
  2. MIRALAX [Suspect]
     Indication: MEDICAL OBSERVATION
     Dosage: 17 g, tid
     Route: 048
     Dates: end: 20120812
  3. HYDROCHLOROTHIAZIDE (+) LISINOPRIL [Concomitant]
     Indication: HYPERTENSION
     Dosage: UNK, Unknown
  4. OMEPRAZOLE [Concomitant]
     Indication: HYPERTENSION
     Dosage: 20 mg, Unknown
  5. CLARITIN [Concomitant]
     Indication: SEASONAL ALLERGY
     Dosage: UNK, Unknown

REACTIONS (5)
  - Abdominal distension [Recovered/Resolved]
  - Weight increased [Recovered/Resolved]
  - Adverse event [Recovered/Resolved]
  - Overdose [Unknown]
  - Drug ineffective [Unknown]
